FAERS Safety Report 14126265 (Version 2)
Quarter: 2018Q1

REPORT INFORMATION
  Report Type: Not Available
  Country: US (occurrence: US)
  Receive Date: 20171025
  Receipt Date: 20180119
  Transmission Date: 20180508
  Serious: No
  Sender: FDA-Public Use
  Company Number: US-NEUROCRINE BIOSCIENCES INC.-2017NBI01246

PATIENT
  Age: 42 Year
  Sex: Female

DRUGS (9)
  1. VALIUM [Concomitant]
     Active Substance: DIAZEPAM
     Route: 048
  2. ADDERALL [Concomitant]
     Active Substance: AMPHETAMINE ASPARTATE\AMPHETAMINE SULFATE\DEXTROAMPHETAMINE SACCHARATE\DEXTROAMPHETAMINE SULFATE
     Route: 048
  3. AMBIEN [Concomitant]
     Active Substance: ZOLPIDEM TARTRATE
     Route: 048
  4. PRADAXA [Concomitant]
     Active Substance: DABIGATRAN ETEXILATE MESYLATE
  5. INGREZZA [Suspect]
     Active Substance: VALBENAZINE
     Route: 048
     Dates: start: 20170519, end: 201710
  6. LEXAPRO [Concomitant]
     Active Substance: ESCITALOPRAM OXALATE
     Route: 048
  7. LEVOTHYROXINE. [Concomitant]
     Active Substance: LEVOTHYROXINE
  8. INGREZZA [Suspect]
     Active Substance: VALBENAZINE
     Indication: DYSKINESIA
     Route: 048
     Dates: start: 20170511, end: 20170518
  9. WELLBUTRIN [Concomitant]
     Active Substance: BUPROPION HYDROCHLORIDE
     Route: 048

REACTIONS (2)
  - Dyskinesia [Recovered/Resolved]
  - Drug ineffective [None]

NARRATIVE: CASE EVENT DATE: 20170710
